FAERS Safety Report 9637124 (Version 1)
Quarter: 2013Q4

REPORT INFORMATION
  Report Type: Spontaneous
  Country: US (occurrence: US)
  Receive Date: 20131022
  Receipt Date: 20131022
  Transmission Date: 20140711
  Serious: No
  Sender: FDA-Public Use
  Company Number: US-009507513-1310USA006433

PATIENT
  Age: 55 Year
  Sex: Male
  Weight: 122.45 kg

DRUGS (5)
  1. PEGINTRON [Suspect]
     Indication: HEPATITIS C
     Dosage: EVERY WEEK
     Route: 058
     Dates: start: 20130814
  2. REBETOL [Suspect]
     Route: 048
  3. CALCIUM (UNSPECIFIED) [Concomitant]
  4. MAGNESIUM (UNSPECIFIED) [Concomitant]
  5. VITAMINS (UNSPECIFIED) [Concomitant]

REACTIONS (5)
  - Melanocytic naevus [Not Recovered/Not Resolved]
  - Depression [Not Recovered/Not Resolved]
  - Alopecia [Not Recovered/Not Resolved]
  - Nausea [Not Recovered/Not Resolved]
  - Asthenia [Not Recovered/Not Resolved]
